FAERS Safety Report 25226321 (Version 2)
Quarter: 2025Q3

REPORT INFORMATION
  Report Type: Spontaneous
  Country: EU (occurrence: EU)
  Receive Date: 20250422
  Receipt Date: 20250819
  Transmission Date: 20251021
  Serious: Yes (Hospitalization)
  Sender: MYLAN
  Company Number: None

PATIENT
  Age: 73 Year
  Sex: Female
  Weight: 85 kg

DRUGS (20)
  1. KETOPROFEN [Suspect]
     Active Substance: KETOPROFEN
     Indication: Pain
     Dosage: 100 MILLIGRAM, QD
     Dates: start: 20250321, end: 20250404
  2. KETOPROFEN [Suspect]
     Active Substance: KETOPROFEN
     Dosage: 100 MILLIGRAM, QD
     Route: 048
     Dates: start: 20250321, end: 20250404
  3. KETOPROFEN [Suspect]
     Active Substance: KETOPROFEN
     Dosage: 100 MILLIGRAM, QD
     Route: 048
     Dates: start: 20250321, end: 20250404
  4. KETOPROFEN [Suspect]
     Active Substance: KETOPROFEN
     Dosage: 100 MILLIGRAM, QD
     Dates: start: 20250321, end: 20250404
  5. RIFAMPIN [Suspect]
     Active Substance: RIFAMPIN
     Indication: Antibiotic prophylaxis
     Dosage: 900 MILLIGRAM, QD
     Dates: start: 20250220, end: 20250404
  6. RIFAMPIN [Suspect]
     Active Substance: RIFAMPIN
     Dosage: 900 MILLIGRAM, QD
     Route: 048
     Dates: start: 20250220, end: 20250404
  7. RIFAMPIN [Suspect]
     Active Substance: RIFAMPIN
     Dosage: 900 MILLIGRAM, QD
     Route: 048
     Dates: start: 20250220, end: 20250404
  8. RIFAMPIN [Suspect]
     Active Substance: RIFAMPIN
     Dosage: 900 MILLIGRAM, QD
     Dates: start: 20250220, end: 20250404
  9. LEVOFLOXACIN [Suspect]
     Active Substance: LEVOFLOXACIN
     Indication: Antibiotic prophylaxis
     Dosage: 750 MILLIGRAM, QD
     Dates: start: 20250220, end: 20250404
  10. LEVOFLOXACIN [Suspect]
     Active Substance: LEVOFLOXACIN
     Dosage: 750 MILLIGRAM, QD
     Route: 048
     Dates: start: 20250220, end: 20250404
  11. LEVOFLOXACIN [Suspect]
     Active Substance: LEVOFLOXACIN
     Dosage: 750 MILLIGRAM, QD
     Route: 048
     Dates: start: 20250220, end: 20250404
  12. LEVOFLOXACIN [Suspect]
     Active Substance: LEVOFLOXACIN
     Dosage: 750 MILLIGRAM, QD
     Dates: start: 20250220, end: 20250404
  13. ACETAMINOPHEN [Concomitant]
     Active Substance: ACETAMINOPHEN
  14. ACETAMINOPHEN [Concomitant]
     Active Substance: ACETAMINOPHEN
     Route: 065
  15. ACETAMINOPHEN [Concomitant]
     Active Substance: ACETAMINOPHEN
     Route: 065
  16. ACETAMINOPHEN [Concomitant]
     Active Substance: ACETAMINOPHEN
  17. CODEINE [Concomitant]
     Active Substance: CODEINE
  18. CODEINE [Concomitant]
     Active Substance: CODEINE
     Route: 065
  19. CODEINE [Concomitant]
     Active Substance: CODEINE
     Route: 065
  20. CODEINE [Concomitant]
     Active Substance: CODEINE

REACTIONS (2)
  - Leukopenia [Not Recovered/Not Resolved]
  - Neutropenia [Recovering/Resolving]

NARRATIVE: CASE EVENT DATE: 20250325
